FAERS Safety Report 9761208 (Version 3)
Quarter: 2014Q1

REPORT INFORMATION
  Report Type: Spontaneous
  Country: US (occurrence: US)
  Receive Date: 20131216
  Receipt Date: 20140108
  Transmission Date: 20141002
  Serious: Yes (Other)
  Sender: FDA-Public Use
  Company Number: US-PFIZER INC-2013359177

PATIENT
  Sex: Female
  Weight: 62.59 kg

DRUGS (1)
  1. CORDARONE [Suspect]
     Indication: VENTRICULAR TACHYCARDIA
     Dosage: 200MG ONCE A DAY
     Route: 048

REACTIONS (1)
  - Cardiac disorder [Unknown]
